FAERS Safety Report 5473462-9 (Version None)
Quarter: 2007Q4

REPORT INFORMATION
  Report Type: 
  Country: None (occurrence: None)
  Receive Date: 20071001
  Receipt Date: 20070918
  Transmission Date: 20080405
  Serious: Yes (Other)
  Sender: FDA-Public Use
  Company Number: US-SHR-US-2007-033184

PATIENT
  Age: 30 Year
  Sex: Female

DRUGS (3)
  1. BETASERON [Suspect]
     Indication: RELAPSING-REMITTING MULTIPLE SCLEROSIS
     Dosage: 2 MIU, EVERY 2D
     Route: 058
     Dates: start: 20070821, end: 20070901
  2. BETASERON [Suspect]
     Dosage: 4 MIU, EVERY 2D
     Route: 058
     Dates: start: 20070901
  3. PROVIGIL [Suspect]
     Indication: FATIGUE

REACTIONS (9)
  - ANXIETY [None]
  - COGNITIVE DISORDER [None]
  - CRYING [None]
  - DELUSION [None]
  - EYE ROLLING [None]
  - INJECTION SITE ERYTHEMA [None]
  - MULTIPLE SCLEROSIS [None]
  - POOR QUALITY SLEEP [None]
  - VOMITING [None]
